FAERS Safety Report 5797229-7 (Version None)
Quarter: 2008Q2

REPORT INFORMATION
  Report Type: 
  Country: None (occurrence: None)
  Receive Date: 20080627
  Receipt Date: 20080617
  Transmission Date: 20081010
  Serious: Yes (Other)
  Sender: FDA-Public Use
  Company Number: 2008JP001990

PATIENT
  Age: 79 Year
  Sex: Female
  Weight: 54.6 kg

DRUGS (11)
  1. VESICARE [Suspect]
     Indication: HYPERTONIC BLADDER
     Dosage: 5 MG, UID/QD, ORAL
     Route: 048
     Dates: start: 20080122, end: 20080220
  2. LOSARTAN POTASSIUM [Concomitant]
  3. CORINAEL [Concomitant]
  4. RIZE (CLOTIAZEPAM) [Concomitant]
  5. OMEPRAL [Concomitant]
  6. LASIX [Concomitant]
  7. GOODMIN (BROTIZOLAM) [Concomitant]
  8. ASPIRIN [Concomitant]
  9. LOKIFLAN (LOXOPROFEN SODIUM) [Concomitant]
  10. PRAVASTATIN [Concomitant]
  11. ENALAPRIL MALEATE [Concomitant]

REACTIONS (9)
  - CHOLANGITIS ACUTE [None]
  - GALLBLADDER DISORDER [None]
  - GALLBLADDER POLYP [None]
  - HEPATIC CYST [None]
  - LIVER DISORDER [None]
  - NEPHROLITHIASIS [None]
  - PALLOR [None]
  - REFUSAL OF TREATMENT BY PATIENT [None]
  - WEIGHT DECREASED [None]
